FAERS Safety Report 8233172-1 (Version None)
Quarter: 2012Q1

REPORT INFORMATION
  Report Type: 
  Country: None (occurrence: None)
  Receive Date: 20120326
  Receipt Date: 20120321
  Transmission Date: 20120608
  Serious: No
  Sender: FDA-Public Use
  Company Number: US-PFIZER INC-2012074276

PATIENT
  Sex: Female
  Weight: 113.38 kg

DRUGS (6)
  1. LIPITOR [Suspect]
     Indication: BLOOD CHOLESTEROL INCREASED
     Dosage: 20 MG, 1X/DAY
     Route: 048
     Dates: start: 20040501, end: 20040101
  2. FUROSEMIDE [Concomitant]
     Indication: CARDIAC DISORDER
     Dosage: 20 MG, 2X/DAY
  3. ACETYLSALICYLIC ACID [Concomitant]
     Dosage: 81 MG, 1X/DAY
  4. ZOLOFT [Concomitant]
     Dosage: 200 MG, 1X/DAY
  5. GLUCOTROL XL [Suspect]
     Indication: DIABETES MELLITUS
     Dosage: 5 MG, 2X/DAY
     Route: 048
     Dates: start: 20040701, end: 20040101
  6. ACCUPRIL [Suspect]
     Indication: HYPERTENSION
     Dosage: 20 MG, 1X/DAY
     Route: 048
     Dates: start: 20000101

REACTIONS (4)
  - BLOOD GLUCOSE ABNORMAL [None]
  - GLYCOSYLATED HAEMOGLOBIN INCREASED [None]
  - BLOOD CHOLESTEROL ABNORMAL [None]
  - DRUG INEFFECTIVE [None]
